FAERS Safety Report 9015967 (Version 2)
Quarter: 2013Q2

REPORT INFORMATION
  Report Type: Spontaneous
  Country: US (occurrence: US)
  Receive Date: 20130116
  Receipt Date: 20130424
  Transmission Date: 20140414
  Serious: No
  Sender: FDA-Public Use
  Company Number: US-009507513-1301USA003948

PATIENT
  Age: 67 Year
  Sex: Male
  Weight: 63.49 kg

DRUGS (2)
  1. PEGINTRON [Suspect]
     Indication: HEPATITIS C
     Dosage: 150 MCG/0.5 ML, ONCE WEEKLY
     Route: 058
     Dates: start: 20121105, end: 20121227
  2. RIBAVIRIN (WARRICK) [Suspect]
     Indication: HEPATITIS C
     Dosage: 600 MG, QD
     Route: 048
     Dates: start: 20121105, end: 20121227

REACTIONS (2)
  - Vision blurred [Recovered/Resolved]
  - Rash [Recovered/Resolved]
